FAERS Safety Report 8587001-7 (Version None)
Quarter: 2012Q3

REPORT INFORMATION
  Report Type: 
  Country: None (occurrence: None)
  Receive Date: 20120810
  Receipt Date: 20120802
  Transmission Date: 20120928
  Serious: No
  Sender: FDA-Public Use
  Company Number: US-ASTRAZENECA-2012SE48291

PATIENT
  Age: 55 Year
  Sex: Male

DRUGS (3)
  1. OTC MEDICATION [Concomitant]
  2. SEROQUEL [Suspect]
     Indication: DEPRESSION
     Route: 048
  3. SEROQUEL [Suspect]
     Indication: SLEEP DISORDER
     Route: 048

REACTIONS (7)
  - INFLUENZA [None]
  - LOWER RESPIRATORY TRACT INFECTION [None]
  - INSOMNIA [None]
  - OFF LABEL USE [None]
  - ASTHMA [None]
  - MALAISE [None]
  - ADVERSE EVENT [None]
